FAERS Safety Report 8978433 (Version 1)
Quarter: 2012Q4

REPORT INFORMATION
  Report Type: Spontaneous
  Country: US (occurrence: None)
  Receive Date: 20121218
  Receipt Date: 20121218
  Transmission Date: 20130627
  Serious: No
  Sender: FDA-Public Use
  Company Number: None

PATIENT
  Age: 65 Year
  Sex: Male
  Weight: 127.46 kg

DRUGS (2)
  1. ATORVASTATIN CALCIUM [Suspect]
     Indication: CHOLESTEROL HIGH
     Dosage: 10MG daily Orally
     Route: 048
     Dates: start: 20121112, end: 20121130
  2. COMMIT - NON SMOKING AID [Concomitant]

REACTIONS (2)
  - Muscle spasms [None]
  - Muscle spasms [None]
